FAERS Safety Report 9491774 (Version 2)
Quarter: 2013Q3

REPORT INFORMATION
  Report Type: Not Available
  Country: US (occurrence: US)
  Receive Date: 20130919
  Receipt Date: 20130919
  Transmission Date: 20140515
  Serious: Yes (Hospitalization, Other)
  Sender: FDA-Public Use
  Company Number: US-LUNDBECK-DKLU1083122

PATIENT
  Sex: Female

DRUGS (6)
  1. SABRIL (FOR ORAL SOLUTION) [Suspect]
     Indication: GRAND MAL CONVULSION
     Route: 048
     Dates: start: 20120620
  2. SABRIL (FOR ORAL SOLUTION) [Suspect]
     Indication: INFANTILE SPASMS
     Route: 048
  3. SABRIL (FOR ORAL SOLUTION) [Suspect]
     Indication: EPILEPSY
     Dosage: 3 PACKETS
     Dates: start: 20120705
  4. SABRIL (FOR ORAL SOLUTION) [Suspect]
     Dosage: WEANED OFF; UNKNOWN TAPER DOWN SCHEDULE
     Dates: end: 20120719
  5. DEPAKOTE [Concomitant]
     Indication: PRODUCT USED FOR UNKNOWN INDICATION
  6. PREDNISONE [Concomitant]
     Indication: PRODUCT USED FOR UNKNOWN INDICATION

REACTIONS (2)
  - Convulsion [Recovered/Resolved]
  - Drug ineffective [Recovered/Resolved]
